FAERS Safety Report 4514130-7 (Version None)
Quarter: 2004Q4

REPORT INFORMATION
  Report Type: 
  Country: None (occurrence: None)
  Receive Date: 20041124
  Receipt Date: 20041116
  Transmission Date: 20050328
  Serious: Yes (Other)
  Sender: FDA-Public Use
  Company Number: AWBNIASPAND2004-13

PATIENT
  Sex: Male

DRUGS (1)
  1. NIASPAN [Suspect]
     Indication: HIGH DENSITY LIPOPROTEIN DECREASED
     Dosage: 500 MG BID PO
     Route: 048

REACTIONS (4)
  - CIRCULATORY COLLAPSE [None]
  - DRUG INTERACTION [None]
  - FLUSHING [None]
  - MEDICATION ERROR [None]
